FAERS Safety Report 18192369 (Version 1)
Quarter: 2020Q3

REPORT INFORMATION
  Report Type: Other
  Country: CA (occurrence: CA)
  Receive Date: 20200825
  Receipt Date: 20200825
  Transmission Date: 20201103
  Serious: Yes (Other)
  Sender: FDA-Public Use
  Company Number: CA-APOTEX-2020AP016625

PATIENT
  Sex: Female

DRUGS (1)
  1. GABAPENTIN. [Suspect]
     Active Substance: GABAPENTIN
     Indication: FIBROMYALGIA
     Dosage: 100 MILLIGRAM
     Route: 065

REACTIONS (4)
  - Neuropathy peripheral [Unknown]
  - Skin atrophy [Unknown]
  - Off label use [Unknown]
  - Product use in unapproved indication [Unknown]
